FAERS Safety Report 6405772-2 (Version None)
Quarter: 2009Q4

REPORT INFORMATION
  Report Type: 
  Country: None (occurrence: None)
  Receive Date: 20091016
  Receipt Date: 20091016
  Transmission Date: 20100525
  Serious: Yes (Death)
  Sender: FDA-Public Use
  Company Number: None

PATIENT
  Age: 42 Year
  Sex: Male
  Weight: 50 kg

DRUGS (4)
  1. EFAVIRENZ (STOCRIN) [Suspect]
     Indication: HIV INFECTION
     Dosage: 600 MG OD PO
     Route: 048
     Dates: start: 20090825, end: 20090906
  2. TRUVADA [Suspect]
     Indication: HIV INFECTION
     Dosage: 500 MG OD PO
     Route: 048
     Dates: start: 20090825, end: 20090906
  3. SEPTRIN [Concomitant]
  4. RIFAMPICIN/ISONIAZID [Concomitant]

REACTIONS (5)
  - CARDIO-RESPIRATORY ARREST [None]
  - FALL [None]
  - GASTROENTERITIS [None]
  - GENERAL PHYSICAL HEALTH DETERIORATION [None]
  - HAEMOGLOBIN DECREASED [None]
